FAERS Safety Report 7173429-9 (Version None)
Quarter: 2010Q4

REPORT INFORMATION
  Report Type: 
  Country: None (occurrence: None)
  Receive Date: 20101219
  Receipt Date: 20100301
  Transmission Date: 20110411
  Serious: No
  Sender: FDA-Public Use
  Company Number: US-AMGEN-KDL395843

PATIENT

DRUGS (9)
  1. ENBREL [Suspect]
     Indication: PSORIASIS
     Dosage: 50 MG, UNK
     Dates: start: 20100224, end: 20100224
  2. GLIPIZIDE [Concomitant]
     Dosage: 5 MG, QD
  3. LEVOTHYROXINE SODIUM [Concomitant]
     Dosage: 112 A?G, QD
  4. ASPIRIN [Concomitant]
     Dosage: 81 MG, QD
  5. SIMVASTATIN [Concomitant]
     Dosage: 40 MG, QD
  6. LISINOPRIL [Concomitant]
     Dosage: 10 MG, QD
  7. METFORMIN [Concomitant]
     Dosage: 1000 MG, QD
  8. FERROUS SULFATE [Concomitant]
     Dosage: 325 MG, QD
  9. ASCORBIC ACID [Concomitant]
     Dosage: UNK UNK, UNK

REACTIONS (2)
  - DIZZINESS [None]
  - PSORIASIS [None]
